FAERS Safety Report 18610676 (Version 1)
Quarter: 2020Q4

REPORT INFORMATION
  Report Type: Report from Study
  Country: CO (occurrence: CO)
  Receive Date: 20201214
  Receipt Date: 20201214
  Transmission Date: 20210114
  Serious: Yes (Other)
  Sender: FDA-Public Use
  Company Number: CO-BRISTOL-MYERS SQUIBB COMPANY-BMS-2020-104733

PATIENT
  Age: 59 Year
  Sex: Female

DRUGS (1)
  1. ABATACEPT [Suspect]
     Active Substance: ABATACEPT
     Indication: RHEUMATOID ARTHRITIS
     Dosage: 500 MILLIGRAM, EVERY 30 DAYS
     Route: 042
     Dates: start: 20190802

REACTIONS (4)
  - Dizziness [Unknown]
  - Hepatitis [Unknown]
  - Arthralgia [Recovering/Resolving]
  - Helicobacter infection [Recovering/Resolving]

NARRATIVE: CASE EVENT DATE: 20201202
